FAERS Safety Report 25483918 (Version 1)
Quarter: 2025Q2

REPORT INFORMATION
  Report Type: Spontaneous
  Country: US (occurrence: US)
  Receive Date: 20250626
  Receipt Date: 20250626
  Transmission Date: 20250717
  Serious: Yes (Hospitalization, Other)
  Sender: PFIZER
  Company Number: US-PFIZER INC-202500127832

PATIENT
  Age: 74 Year
  Sex: Female

DRUGS (1)
  1. XELJANZ XR [Suspect]
     Active Substance: TOFACITINIB CITRATE
     Dosage: 11MG ORAL TABLET
     Route: 048

REACTIONS (6)
  - Fatigue [Unknown]
  - Back pain [Unknown]
  - Rheumatoid arthritis [Unknown]
  - Addison^s disease [Unknown]
  - Vitiligo [Unknown]
  - Hypertension [Unknown]
